FAERS Safety Report 7073166-5 (Version None)
Quarter: 2010Q4

REPORT INFORMATION
  Report Type: 
  Country: None (occurrence: None)
  Receive Date: 20101029
  Receipt Date: 20100505
  Transmission Date: 20110411
  Serious: No
  Sender: FDA-Public Use
  Company Number: A0858382A

PATIENT
  Sex: Male

DRUGS (3)
  1. ADVAIR DISKUS 100/50 [Suspect]
     Indication: ASTHMA
     Route: 055
     Dates: start: 20010101
  2. UNKNOWN BLOOD PRESSURE PILL [Concomitant]
  3. UNSPECIFIED THYROID MEDICATION [Concomitant]

REACTIONS (1)
  - DRUG INEFFECTIVE [None]
